FAERS Safety Report 12578901 (Version 2)
Quarter: 2016Q3

REPORT INFORMATION
  Report Type: Spontaneous
  Country: US (occurrence: US)
  Receive Date: 20160721
  Receipt Date: 20160824
  Transmission Date: 20161109
  Serious: Yes (Other)
  Sender: FDA-Public Use
  Company Number: US-BRISTOL-MYERS SQUIBB COMPANY-BMS-2016-058958

PATIENT
  Sex: Female
  Weight: 68 kg

DRUGS (1)
  1. OPDIVO [Suspect]
     Active Substance: NIVOLUMAB
     Indication: OVARIAN CANCER
     Dosage: UNKNOWN
     Route: 065
     Dates: end: 20160316

REACTIONS (3)
  - Malignant neoplasm progression [Unknown]
  - Therapeutic procedure [Unknown]
  - Product use issue [Unknown]
